FAERS Safety Report 19212249 (Version 3)
Quarter: 2022Q1

REPORT INFORMATION
  Report Type: Report from Study
  Country: FR (occurrence: FR)
  Receive Date: 20210504
  Receipt Date: 20220323
  Transmission Date: 20220423
  Serious: Yes (Other)
  Sender: FDA-Public Use
  Company Number: FR-DAIICHI SANKYO (CHINA) HOLDINGS CO., LTD.-DSU-2021-112402

PATIENT
  Age: 43 Year
  Sex: Female
  Weight: 104 kg

DRUGS (18)
  1. TRASTUZUMAB DERUXTECAN [Suspect]
     Active Substance: TRASTUZUMAB DERUXTECAN
     Indication: Breast cancer metastatic
     Dosage: 5.4MG/KG ONCE EVERY 3 WK
     Route: 042
     Dates: start: 20201117, end: 20201117
  2. TRASTUZUMAB DERUXTECAN [Suspect]
     Active Substance: TRASTUZUMAB DERUXTECAN
     Indication: HER2 positive breast cancer
     Dosage: 5.4MG/KG ONCE EVERY 3 WK
     Route: 042
     Dates: start: 20201208, end: 20201208
  3. TRASTUZUMAB DERUXTECAN [Suspect]
     Active Substance: TRASTUZUMAB DERUXTECAN
     Dosage: 5.4MG/KG ONCE EVERY 3 WK
     Route: 042
     Dates: start: 20201230, end: 20201230
  4. TRASTUZUMAB DERUXTECAN [Suspect]
     Active Substance: TRASTUZUMAB DERUXTECAN
     Dosage: 5.4MG/KG ONCE EVERY 3 WK
     Route: 042
     Dates: start: 20210120, end: 20210120
  5. TRASTUZUMAB DERUXTECAN [Suspect]
     Active Substance: TRASTUZUMAB DERUXTECAN
     Dosage: 5.4MG/KG ONCE EVERY 3 WK
     Route: 042
     Dates: start: 20210210, end: 20210210
  6. TRASTUZUMAB DERUXTECAN [Suspect]
     Active Substance: TRASTUZUMAB DERUXTECAN
     Dosage: 5.4MG/KG ONCE EVERY 3 WK
     Route: 042
     Dates: start: 20210305, end: 20210305
  7. PANTOPRAZOLE [Concomitant]
     Active Substance: PANTOPRAZOLE
     Indication: Prophylaxis
     Dosage: 40 MG, QD
     Route: 048
  8. APREPITANT [Concomitant]
     Active Substance: APREPITANT
     Indication: Nausea
     Dosage: 125 MG ON THE DAY OF STUDY DURING INFUSION
     Route: 048
     Dates: start: 20201208
  9. APREPITANT [Concomitant]
     Active Substance: APREPITANT
     Indication: Vomiting
     Dosage: 80 MG ON D2 TO D5 OF EACH CYCLE
     Route: 048
     Dates: start: 20210306
  10. ARANESP [Concomitant]
     Active Substance: DARBEPOETIN ALFA
     Indication: Anaemia
     Dosage: 500 UG, ONCE EVERY 3 WK
     Route: 058
     Dates: start: 20210120
  11. ONDANSETRON [Concomitant]
     Active Substance: ONDANSETRON
     Indication: Nausea
     Dosage: 8 MG, PRN
     Route: 048
     Dates: start: 20210210
  12. GAVISCON                           /00237601/ [Concomitant]
     Indication: Oesophagitis
     Dosage: 3 SACHET, UNK
     Route: 048
     Dates: start: 202102
  13. METOCLOPRAMID                      /00041901/ [Concomitant]
     Indication: Vomiting
     Dosage: 10 MG,UP TO 6 TABS PER DAY
     Route: 048
     Dates: start: 20210302
  14. ALPRAZOLAM [Concomitant]
     Active Substance: ALPRAZOLAM
     Indication: Prophylaxis
     Dosage: 0.25 MG,1 TAB ON EVENING BEFORE D1, AND ON D1 MORNING
     Route: 048
     Dates: start: 20210304
  15. PREDNISOLONE [Concomitant]
     Active Substance: PREDNISOLONE
     Indication: Vomiting
     Dosage: 20 MG,FROM D2 TO D6 EACHMORNING
     Route: 048
     Dates: start: 20210306
  16. EPOETIN ZETA [Concomitant]
     Active Substance: ERYTHROPOIETIN
     Indication: Anaemia
     Dosage: UNK
     Route: 058
     Dates: start: 202103
  17. ACETYLCYSTEINE [Concomitant]
     Active Substance: ACETYLCYSTEINE
     Indication: COVID-19
     Dosage: UNK, SACHET
     Route: 048
     Dates: start: 20210319
  18. ACETAMINOPHEN [Concomitant]
     Active Substance: ACETAMINOPHEN
     Indication: COVID-19
     Dosage: 4000 MG, QD
     Route: 048
     Dates: start: 202103, end: 202103

REACTIONS (1)
  - Skin hyperpigmentation [Recovering/Resolving]

NARRATIVE: CASE EVENT DATE: 20210420
